FAERS Safety Report 10693062 (Version 1)
Quarter: 2015Q1

REPORT INFORMATION
  Report Type: Spontaneous
  Country: US (occurrence: US)
  Receive Date: 20150106
  Receipt Date: 20150106
  Transmission Date: 20150720
  Serious: Yes (Hospitalization, Other)
  Sender: FDA-Public Use
  Company Number: US-SA-2015SA000456

PATIENT
  Age: 76 Year
  Sex: Female

DRUGS (1)
  1. ALLEGRA [Suspect]
     Active Substance: FEXOFENADINE HYDROCHLORIDE
     Indication: PRODUCTIVE COUGH
     Dosage: TAKEN FROM-YEAR AGO
     Route: 048
     Dates: end: 201406

REACTIONS (6)
  - Atrial fibrillation [Unknown]
  - Food allergy [Unknown]
  - Pneumonia [Unknown]
  - Cerebrovascular accident [Unknown]
  - Dysphagia [Unknown]
  - Pharyngeal disorder [Unknown]

NARRATIVE: CASE EVENT DATE: 201406
